FAERS Safety Report 6206555-9 (Version None)
Quarter: 2009Q2

REPORT INFORMATION
  Report Type: 
  Country: None (occurrence: None)
  Receive Date: 20090527
  Receipt Date: 20090527
  Transmission Date: 20091009
  Serious: Yes (Hospitalization)
  Sender: FDA-Public Use
  Company Number: None

PATIENT
  Sex: Female
  Weight: 74 kg

DRUGS (2)
  1. SORAFENIB 200MG BAYER [Suspect]
     Indication: BREAST CANCER METASTATIC
     Dosage: 200MG TWICE DAILY PO
     Route: 048
     Dates: start: 20090429, end: 20090506
  2. VINORELBINE [Suspect]
     Indication: BREAST CANCER METASTATIC
     Dosage: 25MG/M WEEKLY X 3 IV
     Route: 042
     Dates: start: 20090429, end: 20090506

REACTIONS (2)
  - FEBRILE NEUTROPENIA [None]
  - WHITE BLOOD CELL COUNT DECREASED [None]
